FAERS Safety Report 7111126-6 (Version None)
Quarter: 2010Q4

REPORT INFORMATION
  Report Type: 
  Country: None (occurrence: None)
  Receive Date: 20101118
  Receipt Date: 20091030
  Transmission Date: 20110411
  Serious: No
  Sender: FDA-Public Use
  Company Number: US-TEVA-213809USA

PATIENT
  Sex: Male
  Weight: 113.5 kg

DRUGS (5)
  1. ALBUTEROL SULFATE AUTOHALER [Suspect]
     Indication: ASTHMA
     Dosage: 2-3 TIMES DAILY
     Route: 055
  2. PARACETAMOL [Concomitant]
  3. MULTI-VITAMINS [Concomitant]
  4. BENADRYL COLD AND FLU [Concomitant]
  5. HYDROXYCUT [Concomitant]

REACTIONS (1)
  - DRUG SCREEN POSITIVE [None]
